FAERS Safety Report 9884425 (Version 2)
Quarter: 2014Q2

REPORT INFORMATION
  Report Type: Report from Study
  Country: GR (occurrence: GR)
  Receive Date: 20140210
  Receipt Date: 20140410
  Transmission Date: 20141212
  Serious: Yes (Death)
  Sender: FDA-Public Use
  Company Number: GR-ASTELLAS-2014EU000898

PATIENT
  Age: 43 Year
  Sex: Male
  Weight: 63 kg

DRUGS (1)
  1. MICAFUNGIN INJECTION [Suspect]
     Indication: PYREXIA
     Dosage: 100 MG, UID/QD
     Route: 042
     Dates: start: 20131115, end: 20131203

REACTIONS (1)
  - Septic shock [Fatal]
